FAERS Safety Report 17164503 (Version 3)
Quarter: 2023Q4

REPORT INFORMATION
  Report Type: Spontaneous
  Country: US (occurrence: US)
  Receive Date: 20191217
  Receipt Date: 20231220
  Transmission Date: 20240109
  Serious: No
  Sender: FDA-Public Use
  Company Number: US-PFIZER INC-2018479062

PATIENT
  Age: 56 Year
  Sex: Female

DRUGS (3)
  1. PREMARIN [Suspect]
     Active Substance: ESTROGENS, CONJUGATED
     Indication: Vulvovaginal dryness
     Dosage: 0.5 G, 2-3 TIMES PER WEEK
     Route: 067
  2. PREMARIN [Suspect]
     Active Substance: ESTROGENS, CONJUGATED
     Indication: Vaginal disorder
     Dosage: USE 3 TIMES WEEKLY
     Route: 067
  3. PREMARIN [Suspect]
     Active Substance: ESTROGENS, CONJUGATED
     Dosage: 1 DF, 2X/WEEK [USE ONE APPLICATION TWICE WEEKLY]

REACTIONS (5)
  - Illness [Unknown]
  - Speech disorder [Unknown]
  - Off label use [Unknown]
  - Product use issue [Unknown]
  - Product prescribing issue [Unknown]
